FAERS Safety Report 7892672-4 (Version None)
Quarter: 2011Q4

REPORT INFORMATION
  Report Type: 
  Country: None (occurrence: None)
  Receive Date: 20111102
  Receipt Date: 20111021
  Transmission Date: 20120403
  Serious: Yes (Hospitalization)
  Sender: FDA-Public Use
  Company Number: 2011AP001222

PATIENT
  Age: 43 Year
  Sex: Female

DRUGS (2)
  1. CANDESARTAN CILEXETIL [Concomitant]
  2. CITALOPRAM HYDROBROMIDE [Suspect]
     Indication: DEPRESSION
     Dosage: 10;20 MG
     Dates: start: 20110407

REACTIONS (3)
  - ACUTE PSYCHOSIS [None]
  - AGITATION [None]
  - MALAISE [None]
